FAERS Safety Report 6176394-6 (Version None)
Quarter: 2009Q2

REPORT INFORMATION
  Report Type: 
  Country: None (occurrence: None)
  Receive Date: 20090501
  Receipt Date: 20080904
  Transmission Date: 20091009
  Serious: Yes (Hospitalization)
  Sender: FDA-Public Use
  Company Number: US-ALEXION-A200800175

PATIENT
  Sex: Female

DRUGS (40)
  1. SOLIRIS [Suspect]
     Indication: PAROXYSMAL NOCTURNAL HAEMOGLOBINURIA
     Dosage: 600 MG, SINGLE
     Route: 042
     Dates: start: 20070821, end: 20070821
  2. SOLIRIS [Suspect]
     Dosage: 600 MG, SINGLE
     Route: 042
     Dates: start: 20070828, end: 20070828
  3. SOLIRIS [Suspect]
     Dosage: 600 MG, SINGLE
     Route: 042
     Dates: start: 20070904, end: 20070904
  4. SOLIRIS [Suspect]
     Dosage: 600 MG, SINGLE
     Route: 042
     Dates: start: 20070911, end: 20070911
  5. SOLIRIS [Suspect]
     Dosage: 900 MG, SINGLE
     Route: 042
     Dates: start: 20070918, end: 20070918
  6. SOLIRIS [Suspect]
     Dosage: 900 MG, SINGLE
     Route: 042
     Dates: start: 20071002, end: 20071002
  7. SOLIRIS [Suspect]
     Dosage: 900 MG, SINGLE
     Route: 042
     Dates: start: 20071016, end: 20071016
  8. SOLIRIS [Suspect]
     Dosage: 900 MG, SINGLE
     Route: 042
     Dates: start: 20071030, end: 20071030
  9. SOLIRIS [Suspect]
     Dosage: 900 MG, SINGLE
     Route: 042
     Dates: start: 20071113, end: 20071113
  10. SOLIRIS [Suspect]
     Dosage: 900 MG, SINGLE
     Route: 042
     Dates: start: 20071127, end: 20071127
  11. SOLIRIS [Suspect]
     Dosage: 900 MG, SINGLE
     Route: 042
     Dates: start: 20071211, end: 20071211
  12. SOLIRIS [Suspect]
     Dosage: 900 MG, SINGLE
     Route: 042
     Dates: start: 20071227, end: 20071227
  13. SOLIRIS [Suspect]
     Dosage: 900 MG, SINGLE
     Route: 042
     Dates: start: 20080114, end: 20080114
  14. SOLIRIS [Suspect]
     Dosage: 900 MG, SINGLE
     Route: 042
     Dates: start: 20080125, end: 20080125
  15. SOLIRIS [Suspect]
     Dosage: 900 MG, SINGLE
     Route: 042
     Dates: start: 20080212, end: 20080212
  16. SOLIRIS [Suspect]
     Dosage: 900 MG, SINGLE
     Route: 042
     Dates: start: 20080229, end: 20080229
  17. SOLIRIS [Suspect]
     Dosage: 900 MG, SINGLE
     Route: 042
     Dates: start: 20080314, end: 20080314
  18. SOLIRIS [Suspect]
     Dosage: 900 MG, SINGLE
     Route: 042
     Dates: start: 20080328, end: 20080328
  19. SOLIRIS [Suspect]
     Dosage: 900 MG, SINGLE
     Route: 042
     Dates: start: 20080411, end: 20080411
  20. SOLIRIS [Suspect]
     Dosage: 900 MG, SINGLE
     Route: 042
     Dates: start: 20080425, end: 20080425
  21. PREDNISONE [Suspect]
     Dosage: STARTED ON HIGH DOSE AND AT HOSPITAL DISCHARGE RECEIVED 40 MG X1, THEN 20 MG DAILY X2
     Route: 048
     Dates: start: 20080701
  22. IRON [Concomitant]
     Indication: MINERAL SUPPLEMENTATION
     Dosage: UNK, QD
     Route: 048
  23. COUMADIN [Concomitant]
  24. ATENOLOL [Concomitant]
  25. DETROL LA [Concomitant]
  26. LASIX [Concomitant]
  27. RANITIDINE [Concomitant]
  28. SERTRALINE HCL [Concomitant]
  29. CYMBALTA [Concomitant]
  30. BUSPAR [Concomitant]
  31. ASPIRIN [Concomitant]
  32. FOLIC ACID [Concomitant]
  33. VITAMIN B6 [Concomitant]
  34. CALCIUM WITH VITAMIN D             /00944201/ [Concomitant]
  35. VICODIN [Concomitant]
  36. VISTARIL                           /00058402/ [Concomitant]
  37. GLUCOSAMINE [Concomitant]
  38. SENNA-MINT WAF [Concomitant]
  39. PROMETHAZINE [Concomitant]
  40. BENADRYL [Concomitant]

REACTIONS (3)
  - ARTHRITIS BACTERIAL [None]
  - SEPSIS [None]
  - SEPTIC SHOCK [None]
